FAERS Safety Report 11374416 (Version 2)
Quarter: 2015Q3

REPORT INFORMATION
  Report Type: Spontaneous
  Country: US (occurrence: US)
  Receive Date: 20150813
  Receipt Date: 20150819
  Transmission Date: 20151125
  Serious: Yes (Other)
  Sender: FDA-Public Use
  Company Number: PHEH2015US015253

PATIENT
  Age: 23 Year
  Sex: Male
  Weight: 75.56 kg

DRUGS (1)
  1. SIGNIFOR LAR [Suspect]
     Active Substance: PASIREOTIDE
     Indication: ACROMEGALY
     Dosage: 40 MG, QMO
     Route: 030
     Dates: start: 20150410

REACTIONS (1)
  - Blood creatine phosphokinase increased [Recovering/Resolving]

NARRATIVE: CASE EVENT DATE: 20150728
